FAERS Safety Report 10314531 (Version 1)
Quarter: 2014Q3

REPORT INFORMATION
  Report Type: Spontaneous
  Country: DE (occurrence: DE)
  Receive Date: 20140718
  Receipt Date: 20140718
  Transmission Date: 20150326
  Serious: Yes (Congenital Anomaly)
  Sender: FDA-Public Use
  Company Number: DE-BANPHARM-20142863

PATIENT
  Sex: Male
  Weight: 3.64 kg

DRUGS (7)
  1. VIANI [Suspect]
     Active Substance: FLUTICASONE PROPIONATE\SALMETEROL XINAFOATE
     Route: 064
  2. TETRAZEPAM [Suspect]
     Active Substance: TETRAZEPAM
     Dosage: 50 MG,
     Route: 064
  3. SALBUTAMOL [Suspect]
     Active Substance: ALBUTEROL
     Dosage: PRN,
     Route: 064
     Dates: start: 20130327, end: 20130618
  4. PROSTAGLANDIN [Concomitant]
     Route: 064
     Dates: start: 20140109, end: 20140109
  5. IBUPROFEN UNKNOWN PRODUCT [Suspect]
     Active Substance: IBUPROFEN
     Dosage: 800 MG, TID,
     Route: 064
  6. CELEBREX [Suspect]
     Active Substance: CELECOXIB
     Dosage: 200MG,
     Route: 064
  7. FOLIO FORTE [Concomitant]
     Active Substance: FOLIC ACID\VITAMINS
     Dosage: 0.8 MG, QD,
     Route: 064
     Dates: start: 20130517, end: 20140109

REACTIONS (2)
  - Transposition of the great vessels [Recovered/Resolved with Sequelae]
  - Ventricular septal defect [Recovered/Resolved with Sequelae]
